FAERS Safety Report 10196520 (Version 2)
Quarter: 2014Q2

REPORT INFORMATION
  Report Type: Spontaneous
  Country: JP (occurrence: None)
  Receive Date: 20140522
  Receipt Date: 20140616
  Transmission Date: 20141212
  Serious: Yes (Hospitalization)
  Sender: FDA-Public Use
  Company Number: JP-015744

PATIENT
  Age: 78 Year
  Sex: Male
  Weight: 56 kg

DRUGS (5)
  1. DEGARELIX [Suspect]
     Indication: PROSTATE CANCER
     Route: 058
     Dates: start: 20130918, end: 20130918
  2. BAYASPIRIN [Concomitant]
  3. BLOPRESS [Concomitant]
  4. REBAMIPIDE [Concomitant]
  5. URSO [Concomitant]

REACTIONS (8)
  - Loss of consciousness [None]
  - Incontinence [None]
  - Blood pressure decreased [None]
  - Intentional product misuse [None]
  - Erythema [None]
  - Induration [None]
  - Vomiting [None]
  - Blood sodium decreased [None]
